FAERS Safety Report 9538579 (Version 1)
Quarter: 2013Q3

REPORT INFORMATION
  Report Type: Spontaneous
  Country: US (occurrence: None)
  Receive Date: 20130917
  Receipt Date: 20130917
  Transmission Date: 20140515
  Serious: Yes (Hospitalization, Other)
  Sender: FDA-Public Use
  Company Number: 2012-000688

PATIENT
  Age: 79 Year
  Sex: Female
  Weight: 59.6 kg

DRUGS (6)
  1. ACTONEL (RISEDRONATE SODIUM) TABLET, 5MG [Suspect]
     Indication: OSTEOPOROSIS
     Dosage: 5 MG ONCE DAILY, ORAL
     Route: 048
     Dates: start: 20010421, end: 20010912
  2. FOSAMAX (ALENDRONATE SODIUM) [Suspect]
     Indication: OSTEOPOROSIS
     Dosage: 10 MG ONCE DAILY, ORAL
     Route: 048
     Dates: start: 19960319, end: 20010421
  3. BONIVA (BANDRONATE SODIUM) [Suspect]
     Indication: OSTEOPOROSIS
     Dosage: 150 MG ONCE MONTLY, ORAL
     Route: 048
     Dates: start: 20070413
  4. EVISTA (RALOXIFENE HYDROCHLORIDE) [Suspect]
     Indication: OSTEOPOROSIS
     Route: 048
     Dates: start: 20060419, end: 20100708
  5. ACIPHEX (RABEPRAZOLE SODIUM) [Concomitant]
  6. PEPCID / 00706001 (FAMOTIDINE) [Concomitant]

REACTIONS (4)
  - Fall [None]
  - Femur fracture [None]
  - Osteoporotic fracture [None]
  - Fracture displacement [None]
